FAERS Safety Report 9475136 (Version 1)
Quarter: 2013Q3

REPORT INFORMATION
  Report Type: Spontaneous
  Country: US (occurrence: US)
  Receive Date: 20130824
  Receipt Date: 20130824
  Transmission Date: 20140515
  Serious: Yes (Death)
  Sender: FDA-Public Use
  Company Number: US-ROCHE-1266123

PATIENT
  Sex: Female

DRUGS (9)
  1. XELODA [Suspect]
     Indication: BREAST CANCER
     Dosage: 7 DAYS ON THEN 7 DAYS OFF
     Route: 048
     Dates: start: 20130726
  2. HUMALOG [Concomitant]
     Indication: DIABETES MELLITUS
  3. BACLOFEN [Concomitant]
  4. DETROL [Concomitant]
  5. TIMOPTIC [Concomitant]
  6. ZOLOFT [Concomitant]
  7. FOLIC ACID [Concomitant]
  8. XGEVA [Concomitant]
  9. FASLODEX [Concomitant]

REACTIONS (1)
  - Death [Fatal]
